FAERS Safety Report 21401256 (Version 3)
Quarter: 2022Q4

REPORT INFORMATION
  Report Type: Spontaneous
  Country: TR (occurrence: TR)
  Receive Date: 20221003
  Receipt Date: 20221116
  Transmission Date: 20230112
  Serious: Yes (Hospitalization)
  Sender: FDA-Public Use
  Company Number: TR-NOVARTISPH-NVSC2022TR222355

PATIENT
  Age: 63 Year
  Sex: Male

DRUGS (2)
  1. SACUBITRIL\VALSARTAN [Suspect]
     Active Substance: SACUBITRIL\VALSARTAN
     Indication: Cardiac failure
     Dosage: 1 DOSAGE FORM, BID (ONE IN THE MORNING AND ONE IN THE EVENING)
     Route: 065
  2. SACUBITRIL\VALSARTAN [Suspect]
     Active Substance: SACUBITRIL\VALSARTAN
     Dosage: 1 DOSAGE FORM, QD
     Route: 065

REACTIONS (8)
  - Hypertension [Recovered/Resolved]
  - Chest discomfort [Not Recovered/Not Resolved]
  - Dizziness [Recovered/Resolved]
  - Asthenia [Recovered/Resolved]
  - Dyspnoea [Not Recovered/Not Resolved]
  - Insomnia [Not Recovered/Not Resolved]
  - Inappropriate schedule of product administration [Unknown]
  - Underdose [Unknown]
